FAERS Safety Report 12875931 (Version 1)
Quarter: 2016Q4

REPORT INFORMATION
  Report Type: Spontaneous
  Country: US (occurrence: US)
  Receive Date: 20161024
  Receipt Date: 20161024
  Transmission Date: 20170207
  Serious: No
  Sender: FDA-Public Use
  Company Number: US-JAZZ-2016-US-015030

PATIENT
  Age: 28 Year
  Sex: Female
  Weight: 70.3 kg

DRUGS (13)
  1. XYREM [Suspect]
     Active Substance: SODIUM OXYBATE
     Indication: NARCOLEPSY
     Dosage: 2.25 G, BID
     Route: 048
     Dates: start: 20160805
  2. NUVIGIL [Concomitant]
     Active Substance: ARMODAFINIL
  3. IBUPROFEN. [Concomitant]
     Active Substance: IBUPROFEN
  4. TYLENOL EXTRA STRENGTH [Concomitant]
     Active Substance: ACETAMINOPHEN
  5. BACLOFEN. [Concomitant]
     Active Substance: BACLOFEN
  6. ADVIL [Concomitant]
     Active Substance: IBUPROFEN
  7. GENERESS FE [Concomitant]
     Active Substance: ETHINYL ESTRADIOL\FERROUS FUMARATE\NORETHINDRONE
  8. MODAFINIL. [Concomitant]
     Active Substance: MODAFINIL
  9. SKELAXIN [Concomitant]
     Active Substance: METAXALONE
  10. L-LYSINE [Concomitant]
     Active Substance: LYSINE
  11. TIZANIDINE HCL [Concomitant]
     Active Substance: TIZANIDINE HYDROCHLORIDE
  12. CALCIUM +D [Concomitant]
     Active Substance: CALCIUM\VITAMIN D
  13. EXCEDRIN EXTRA STRENGTH [Concomitant]
     Active Substance: ACETAMINOPHEN\ASPIRIN\CAFFEINE

REACTIONS (2)
  - Hypoaesthesia [Unknown]
  - Dizziness [Unknown]

NARRATIVE: CASE EVENT DATE: 20160808
